FAERS Safety Report 16430813 (Version 1)
Quarter: 2019Q2

REPORT INFORMATION
  Report Type: Report from Study
  Country: IT (occurrence: IT)
  Receive Date: 20190614
  Receipt Date: 20190614
  Transmission Date: 20190711
  Serious: Yes (Hospitalization)
  Sender: FDA-Public Use
  Company Number: IT-TEVA-2019-IT-1062486

PATIENT
  Age: 9 Year
  Sex: Male
  Weight: 37 kg

DRUGS (19)
  1. MYELOSTIM [Suspect]
     Active Substance: LENOGRASTIM
     Indication: APLASIA
     Route: 042
     Dates: start: 20181211, end: 20181215
  2. ENDOXAN BAXTER [Suspect]
     Active Substance: CYCLOPHOSPHAMIDE
     Indication: ACUTE LYMPHOCYTIC LEUKAEMIA
     Route: 042
     Dates: start: 20181201, end: 20181202
  3. IG VENA [Concomitant]
     Active Substance: HUMAN IMMUNOGLOBULIN G
     Indication: BLOOD IMMUNOGLOBULIN G DECREASED
     Route: 042
     Dates: start: 20181207, end: 20181207
  4. TRIMETON [Concomitant]
     Active Substance: CHLORPHENIRAMINE MALEATE
     Indication: PREMEDICATION
     Route: 042
  5. METHOTREXATE. [Suspect]
     Active Substance: METHOTREXATE
     Indication: ACUTE LYMPHOCYTIC LEUKAEMIA
     Route: 042
     Dates: start: 20181115, end: 20181221
  6. ENDOXAN BAXTER [Suspect]
     Active Substance: CYCLOPHOSPHAMIDE
     Route: 042
     Dates: start: 20181130, end: 20181130
  7. VINCRISTINE [Suspect]
     Active Substance: VINCRISTINE
     Indication: ACUTE LYMPHOCYTIC LEUKAEMIA
     Route: 042
     Dates: start: 20181129, end: 20181204
  8. UROMITEXAN [Suspect]
     Active Substance: MESNA
     Route: 042
     Dates: start: 20181203, end: 20181203
  9. DEBRIDAT [Concomitant]
     Active Substance: TRIMEBUTINE MALEATE
     Route: 042
     Dates: start: 20181207
  10. ANTITHROMBIN III HUMAN [Concomitant]
     Active Substance: ANTITHROMBIN III HUMAN
  11. MYELOSTIM [Suspect]
     Active Substance: LENOGRASTIM
     Route: 058
     Dates: start: 20181209, end: 20181210
  12. FLEBOCORTID RICHTER [Concomitant]
     Indication: PREMEDICATION
     Route: 042
  13. METHOTREXATE. [Suspect]
     Active Substance: METHOTREXATE
     Route: 037
     Dates: start: 20181115, end: 20181129
  14. ANTRA [Suspect]
     Active Substance: OMEPRAZOLE
     Route: 042
  15. ONCASPAR [Suspect]
     Active Substance: PEGASPARGASE
     Indication: ACUTE LYMPHOCYTIC LEUKAEMIA
     Route: 042
     Dates: start: 20181204, end: 20181226
  16. UROMITEXAN [Suspect]
     Active Substance: MESNA
     Indication: ACUTE LYMPHOCYTIC LEUKAEMIA
     Route: 042
     Dates: start: 20181201, end: 20181202
  17. DILATREND [Concomitant]
     Active Substance: CARVEDILOL
     Route: 048
  18. BACTRIM [Concomitant]
     Active Substance: SULFAMETHOXAZOLE\TRIMETHOPRIM
     Route: 048
  19. PERFALGAN [Concomitant]
     Active Substance: ACETAMINOPHEN
     Route: 042
     Dates: start: 20181207, end: 20181207

REACTIONS (3)
  - Mucosal inflammation [Recovered/Resolved]
  - Bone pain [Recovered/Resolved]
  - Salivary hypersecretion [Recovered/Resolved]

NARRATIVE: CASE EVENT DATE: 20181211
